FAERS Safety Report 12919532 (Version 2)
Quarter: 2021Q4

REPORT INFORMATION
  Report Type: Spontaneous
  Country: DE (occurrence: DE)
  Receive Date: 20161108
  Receipt Date: 20211021
  Transmission Date: 20220303
  Serious: Yes (Congenital Anomaly, Other)
  Sender: FDA-Public Use
  Company Number: US-AUROBINDO-AUR-APL-2016-13590

PATIENT
  Age: 1 Day
  Sex: Male
  Weight: 3.05 kg

DRUGS (2)
  1. LAMOTRIGINE [Suspect]
     Active Substance: LAMOTRIGINE
     Indication: Epilepsy
     Dosage: 400 [MG/D]/ INITIAL DOSAFE 100 MG/D, FROM GW 11+1 200 MG/D
     Route: 064
     Dates: start: 20151014, end: 20160611
  2. FOLIC ACID\VITAMINS [Concomitant]
     Active Substance: FOLIC ACID\VITAMINS
     Indication: Prophylaxis of neural tube defect
     Dosage: 0.8 MG, ONCE A DAY
     Route: 064
     Dates: start: 20151014, end: 20160611

REACTIONS (2)
  - Anal atresia [Recovered/Resolved with Sequelae]
  - Foetal exposure during pregnancy [Recovered/Resolved with Sequelae]

NARRATIVE: CASE EVENT DATE: 20160611
